FAERS Safety Report 9507667 (Version 1)
Quarter: 2013Q3

REPORT INFORMATION
  Report Type: Spontaneous
  Country: PH (occurrence: PH)
  Receive Date: 20130909
  Receipt Date: 20130909
  Transmission Date: 20140515
  Serious: Yes (Death, Disabling, Other)
  Sender: FDA-Public Use
  Company Number: PH-009507513-1309PHL002055

PATIENT
  Sex: Female

DRUGS (1)
  1. COZAAR [Suspect]
     Dosage: 50 MG, ONE TABLET ONCE A DAY
     Route: 048

REACTIONS (3)
  - Cardiac arrest [Fatal]
  - Bedridden [Unknown]
  - Diabetes mellitus [Unknown]
